FAERS Safety Report 11535944 (Version 2)
Quarter: 2015Q3

REPORT INFORMATION
  Report Type: Spontaneous
  Country: CN (occurrence: CN)
  Receive Date: 20150922
  Receipt Date: 20150924
  Transmission Date: 20151125
  Serious: Yes (Death, Other)
  Sender: FDA-Public Use
  Company Number: PHHY2015CN113795

PATIENT
  Age: 52 Year
  Sex: Male

DRUGS (10)
  1. CICLOSPORIN [Suspect]
     Active Substance: CYCLOSPORINE
     Indication: IMMUNOSUPPRESSION
  2. MYCOPHENOLATE MOFETIL. [Suspect]
     Active Substance: MYCOPHENOLATE MOFETIL
     Indication: IMMUNOSUPPRESSION
  3. TACROLIMUS. [Suspect]
     Active Substance: TACROLIMUS
     Indication: LIVER TRANSPLANT
     Dosage: 3.5 MG, Q12H
     Route: 065
  4. PREDNISONE. [Suspect]
     Active Substance: PREDNISONE
     Indication: IMMUNOSUPPRESSION
  5. MYCOPHENOLATE MOFETIL. [Suspect]
     Active Substance: MYCOPHENOLATE MOFETIL
     Indication: LIVER TRANSPLANT
     Dosage: 750 MG, Q12H
     Route: 065
  6. TACROLIMUS. [Suspect]
     Active Substance: TACROLIMUS
     Dosage: 3 MG, Q12H
     Route: 065
  7. CICLOSPORIN [Suspect]
     Active Substance: CYCLOSPORINE
     Indication: LIVER TRANSPLANT
     Dosage: 150 MG, Q12H
     Route: 065
  8. PREDNISONE. [Suspect]
     Active Substance: PREDNISONE
     Indication: LIVER TRANSPLANT
     Dosage: 10 MG, QD
     Route: 065
  9. TACROLIMUS. [Suspect]
     Active Substance: TACROLIMUS
     Indication: IMMUNOSUPPRESSION
     Dosage: 2 MG, Q12H
     Route: 065
  10. IMIPENEM+CILASTATINA [Concomitant]
     Indication: INFECTION
     Route: 065

REACTIONS (10)
  - Rash [Unknown]
  - Graft versus host disease [Unknown]
  - Posterior reversible encephalopathy syndrome [Unknown]
  - Multi-organ failure [Fatal]
  - Anaemia [Unknown]
  - Pyrexia [Unknown]
  - Drug ineffective [Unknown]
  - Leukopenia [Unknown]
  - Seizure [Unknown]
  - Abdominal distension [Unknown]
